FAERS Safety Report 4430985-9 (Version None)
Quarter: 2004Q3

REPORT INFORMATION
  Report Type: 
  Country: None (occurrence: None)
  Receive Date: 20040824
  Receipt Date: 20040816
  Transmission Date: 20050211
  Serious: Yes (Hospitalization)
  Sender: FDA-Public Use
  Company Number: NL-JNJFOC-20031003519

PATIENT
  Age: 51 Year
  Sex: Female

DRUGS (21)
  1. REMICADE [Suspect]
     Indication: RHEUMATOID ARTHRITIS
     Dosage: DRUG NOT ADMINISTERED
     Route: 042
  2. ATENOLOL [Concomitant]
     Indication: HYPERTENSION
     Dates: start: 20021201
  3. PANTOPRAZOLE SODIUM [Concomitant]
     Indication: DYSPEPSIA
  4. PARACETAMOL WITH CODEINE [Concomitant]
     Dates: start: 20011201
  5. PARACETAMOL WITH CODEINE [Concomitant]
     Indication: PAIN
     Dates: start: 20011201
  6. PREDNISOLONE [Concomitant]
     Dates: start: 20030529
  7. FOLIC ACID [Concomitant]
     Dates: start: 20020529
  8. CALCIUM [Concomitant]
  9. AMITRIPTYLINE HCL [Concomitant]
     Indication: PAIN
     Dates: start: 20021201
  10. GOLD [Concomitant]
     Dates: start: 20030512
  11. LASIX [Concomitant]
     Dates: start: 20021201
  12. VENTOLIN [Concomitant]
     Dates: start: 20021201
  13. VITAMIN D [Concomitant]
  14. FOSAMAX [Concomitant]
  15. DURATEARS [Concomitant]
  16. DURATEARS [Concomitant]
  17. DURATEARS [Concomitant]
  18. DURATEARS [Concomitant]
  19. DURATEARS [Concomitant]
  20. CARBOMER [Concomitant]
  21. TRAMAL [Concomitant]
     Indication: PAIN

REACTIONS (3)
  - BLOOD POTASSIUM DECREASED [None]
  - GENERAL PHYSICAL CONDITION ABNORMAL [None]
  - NO ADVERSE DRUG EFFECT [None]
